FAERS Safety Report 15995439 (Version 1)
Quarter: 2019Q1

REPORT INFORMATION
  Report Type: Spontaneous
  Country: US (occurrence: US)
  Receive Date: 20190222
  Receipt Date: 20190222
  Transmission Date: 20190418
  Serious: No
  Sender: FDA-Public Use
  Company Number: US-009507513-1901USA010726

PATIENT
  Sex: Female

DRUGS (1)
  1. NEXPLANON [Suspect]
     Active Substance: ETONOGESTREL
     Dosage: 1 IMPLANT EVERY THREE YEARS, IN AN UNKNOWN ARM
     Route: 059
     Dates: end: 201812

REACTIONS (3)
  - Device kink [Recovered/Resolved]
  - No adverse event [Unknown]
  - Device breakage [Recovered/Resolved]
